FAERS Safety Report 17156466 (Version 1)
Quarter: 2019Q4

REPORT INFORMATION
  Report Type: Spontaneous
  Country: FR (occurrence: FR)
  Receive Date: 20191216
  Receipt Date: 20191216
  Transmission Date: 20200122
  Serious: Yes (Hospitalization, Other)
  Sender: FDA-Public Use
  Company Number: FR-ROCHE-2492351

PATIENT
  Age: 54 Year
  Sex: Female

DRUGS (11)
  1. CLONAZEPAM. [Suspect]
     Active Substance: CLONAZEPAM
     Indication: DELUSION
  2. OLANZAPINE. [Suspect]
     Active Substance: OLANZAPINE
     Indication: HALLUCINATION
     Route: 065
     Dates: start: 201901, end: 2019
  3. PREDNISOLONE. [Concomitant]
     Active Substance: PREDNISOLONE
     Indication: SYSTEMIC LUPUS ERYTHEMATOSUS
     Route: 065
     Dates: start: 2015, end: 2019
  4. OLANZAPINE. [Suspect]
     Active Substance: OLANZAPINE
     Indication: DELUSION
  5. MYCOPHENOLATE MOFETIL. [Concomitant]
     Active Substance: MYCOPHENOLATE MOFETIL
     Indication: SYSTEMIC LUPUS ERYTHEMATOSUS
     Route: 065
     Dates: start: 2015, end: 2019
  6. LOXAPAC [LOXAPINE] [Suspect]
     Active Substance: LOXAPINE
     Indication: DELUSION
  7. LOXAPAC [LOXAPINE] [Suspect]
     Active Substance: LOXAPINE
     Indication: HALLUCINATION
  8. CLONAZEPAM. [Suspect]
     Active Substance: CLONAZEPAM
     Indication: HALLUCINATION
     Route: 065
     Dates: start: 201901, end: 2019
  9. LOXAPAC [LOXAPINE] [Suspect]
     Active Substance: LOXAPINE
     Indication: MANIA
     Route: 065
     Dates: start: 201901, end: 2019
  10. CLONAZEPAM. [Suspect]
     Active Substance: CLONAZEPAM
     Indication: MANIA
  11. OLANZAPINE. [Suspect]
     Active Substance: OLANZAPINE
     Indication: MANIA

REACTIONS (3)
  - Acute respiratory distress syndrome [Unknown]
  - Catatonia [Recovering/Resolving]
  - Psychotic disorder due to a general medical condition [Recovering/Resolving]

NARRATIVE: CASE EVENT DATE: 2019
